FAERS Safety Report 5083041-3 (Version None)
Quarter: 2006Q3

REPORT INFORMATION
  Report Type: 
  Country: None (occurrence: None)
  Receive Date: 20060814
  Receipt Date: 20060803
  Transmission Date: 20061208
  Serious: Yes (Other)
  Sender: FDA-Public Use
  Company Number: 2006095115

PATIENT
  Age: 64 Year
  Sex: Female

DRUGS (3)
  1. AMLODIPINE [Suspect]
     Indication: HYPERTENSION
  2. ESTROGENIC SUBSTANCE [Concomitant]
  3. REVUE MEDICALE DE BRUXELLES [Concomitant]

REACTIONS (1)
  - LIPOSARCOMA [None]
